FAERS Safety Report 13643144 (Version 1)
Quarter: 2017Q2

REPORT INFORMATION
  Report Type: Spontaneous
  Country: RO (occurrence: RO)
  Receive Date: 20170612
  Receipt Date: 20170612
  Transmission Date: 20170830
  Serious: Yes (Death, Other)
  Sender: FDA-Public Use
  Company Number: RO-FRESENIUS KABI-FK201704827

PATIENT
  Age: 76 Year
  Sex: Female

DRUGS (1)
  1. HALOPERIDOL INJECTION (MANUFACTURER UNKNOWN) [Suspect]
     Active Substance: HALOPERIDOL LACTATE
     Indication: SCHIZOPHRENIA
     Route: 065

REACTIONS (1)
  - Cerebrovascular disorder [Unknown]
